FAERS Safety Report 4345319-8 (Version None)
Quarter: 2004Q2

REPORT INFORMATION
  Report Type: 
  Country: None (occurrence: None)
  Receive Date: 20040420
  Receipt Date: 20040406
  Transmission Date: 20050107
  Serious: Yes (Life-Threatening, Hospitalization)
  Sender: FDA-Public Use
  Company Number: 205753

PATIENT
  Age: 56 Year
  Sex: Male
  Weight: 72 kg

DRUGS (7)
  1. EFALIZUMAB (EFALIZUMAB) PWDR + SOLVENT, INJECTIONS OLN 125 MG [Suspect]
     Indication: PSORIASIS
     Dosage: 0.7 ML , 1 /WEEK, SUBCUTANEOUS
     Route: 058
     Dates: start: 20040113, end: 20040327
  2. ZESTRIL [Concomitant]
  3. ZANTAC [Concomitant]
  4. DILANTIN [Concomitant]
  5. MEDROL [Concomitant]
  6. INDOCIN [Concomitant]
  7. ALLOPURINOL [Concomitant]

REACTIONS (8)
  - CAROTID ARTERY ATHEROMA [None]
  - CORONARY ARTERY DISEASE [None]
  - CORONARY ARTERY OCCLUSION [None]
  - MITRAL VALVE INCOMPETENCE [None]
  - MITRAL VALVE PROLAPSE [None]
  - MYOCARDIAL INFARCTION [None]
  - SUBDURAL HAEMATOMA [None]
  - TRICUSPID VALVE INCOMPETENCE [None]
